FAERS Safety Report 13764638 (Version 2)
Quarter: 2017Q4

REPORT INFORMATION
  Report Type: Spontaneous
  Country: US (occurrence: US)
  Receive Date: 20170718
  Receipt Date: 20171017
  Transmission Date: 20180320
  Serious: Yes (Hospitalization)
  Sender: FDA-Public Use
  Company Number: US-NOVOPROD-551145

PATIENT
  Age: 13 Year
  Sex: Female
  Weight: 57.6 kg

DRUGS (5)
  1. TRESIBA [Suspect]
     Active Substance: INSULIN DEGLUDEC
     Dosage: 24 U, QD IN THE MORNING
     Route: 058
     Dates: start: 2017, end: 20170508
  2. TRESIBA [Suspect]
     Active Substance: INSULIN DEGLUDEC
     Dosage: 28 U, QD IN THE MORNING
     Route: 058
     Dates: start: 2017, end: 2017
  3. HUMALOG [Concomitant]
     Active Substance: INSULIN LISPRO
     Indication: TYPE 1 DIABETES MELLITUS
     Dosage: UNK
     Route: 058
  4. TRESIBA [Suspect]
     Active Substance: INSULIN DEGLUDEC
     Dosage: 26 U, QD IN THE MORNING
     Route: 058
     Dates: start: 2017, end: 2017
  5. TRESIBA [Suspect]
     Active Substance: INSULIN DEGLUDEC
     Indication: TYPE 1 DIABETES MELLITUS
     Dosage: 30 U, QD IN THE MORNING
     Route: 058
     Dates: start: 201704, end: 2017

REACTIONS (4)
  - Hypoglycaemic seizure [Recovered/Resolved]
  - Hypoglycaemic unconsciousness [Recovered/Resolved]
  - Memory impairment [Not Recovered/Not Resolved]
  - Cognitive disorder [Not Recovered/Not Resolved]

NARRATIVE: CASE EVENT DATE: 20170508
